FAERS Safety Report 23843136 (Version 1)
Quarter: 2024Q2

REPORT INFORMATION
  Report Type: Spontaneous
  Country: US (occurrence: None)
  Receive Date: 20240510
  Receipt Date: 20240510
  Transmission Date: 20240716
  Serious: No
  Sender: FDA-Public Use
  Company Number: None

PATIENT
  Age: 32 Year
  Sex: Male
  Weight: 7138 kg

DRUGS (6)
  1. CYCLOPHOSPHAMIDE [Suspect]
     Active Substance: CYCLOPHOSPHAMIDE
     Dates: start: 20240314, end: 20240404
  2. CYTARABINE [Suspect]
     Active Substance: CYTARABINE
  3. DASATINIB [Suspect]
     Active Substance: DASATINIB
  4. METHOTREXATE [Suspect]
     Active Substance: METHOTREXATE
  5. VINCRISTINE SULFATE [Suspect]
     Active Substance: VINCRISTINE SULFATE
  6. MESNA [Suspect]
     Active Substance: MESNA

REACTIONS (2)
  - Febrile neutropenia [None]
  - Chills [None]

NARRATIVE: CASE EVENT DATE: 20240504
